FAERS Safety Report 4689662-1 (Version None)
Quarter: 2005Q2

REPORT INFORMATION
  Report Type: 
  Country: None (occurrence: None)
  Receive Date: 20050606
  Receipt Date: 20041020
  Transmission Date: 20051028
  Serious: Yes (Death)
  Sender: FDA-Public Use
  Company Number: LUS-100221-US

PATIENT
  Age: 40 Year
  Sex: Female
  Weight: 106 kg

DRUGS (2)
  1. MIRCETTE [Suspect]
     Indication: MENSTRUAL DISORDER
     Dosage: 1 DF DAILY ORAL
     Route: 048
     Dates: start: 20011104, end: 20011128
  2. PROVERA [Concomitant]

REACTIONS (2)
  - DEEP VEIN THROMBOSIS [None]
  - PULMONARY EMBOLISM [None]
